FAERS Safety Report 15961997 (Version 2)
Quarter: 2019Q1

REPORT INFORMATION
  Report Type: Spontaneous
  Country: US (occurrence: US)
  Receive Date: 20190214
  Receipt Date: 20190225
  Transmission Date: 20190417
  Serious: No
  Sender: FDA-Public Use
  Company Number: US-HORIZON-PEN-0132-2019

PATIENT
  Age: 37 Year
  Sex: Female

DRUGS (6)
  1. PENNSAID [Suspect]
     Active Substance: DICLOFENAC SODIUM
     Indication: NECK PAIN
  2. CARVEDILOL. [Concomitant]
     Active Substance: CARVEDILOL
  3. TIZANIDINE. [Concomitant]
     Active Substance: TIZANIDINE
  4. TOPIRAMATE. [Concomitant]
     Active Substance: TOPIRAMATE
  5. DICLOFENAC SODIUM. [Concomitant]
     Active Substance: DICLOFENAC SODIUM
  6. GABAPENTIN. [Concomitant]
     Active Substance: GABAPENTIN

REACTIONS (4)
  - Application site dryness [Recovering/Resolving]
  - Diarrhoea [Recovered/Resolved]
  - Off label use [Unknown]
  - Application site exfoliation [Recovered/Resolved]
